FAERS Safety Report 10984351 (Version 2)
Quarter: 2015Q2

REPORT INFORMATION
  Report Type: Report from Study
  Country: US (occurrence: US)
  Receive Date: 20150403
  Receipt Date: 20150415
  Transmission Date: 20150821
  Serious: Yes (Hospitalization)
  Sender: FDA-Public Use
  Company Number: US-PURDUE PHARMA-USA-2015-0122069

PATIENT
  Age: 13 Year
  Sex: Male
  Weight: 29.9 kg

DRUGS (15)
  1. ALBUTEROL                          /00139501/ [Concomitant]
     Active Substance: ALBUTEROL
     Dosage: 2 PUFF, TID
     Route: 055
  2. NORCO [Concomitant]
     Active Substance: ACETAMINOPHEN\HYDROCODONE BITARTRATE
     Indication: PAIN
     Dosage: 10 MG, Q4H
     Route: 048
  3. IBUPROFEN. [Concomitant]
     Active Substance: IBUPROFEN
     Indication: PAIN
     Route: 048
  4. TRAMADOL [Concomitant]
     Active Substance: TRAMADOL
     Indication: BREAKTHROUGH PAIN
     Dosage: 50 MG, Q6H PRN
     Route: 048
  5. MORPHINE [Concomitant]
     Active Substance: MORPHINE
     Indication: BREAKTHROUGH PAIN
     Dosage: 15 MG, Q6H PRN
     Route: 048
  6. FLUTICASONE                        /00972202/ [Concomitant]
     Dosage: 2 PUFF, BID
  7. FLUTICASONE                        /00972202/ [Concomitant]
     Dosage: 1 SPRAY, BID
  8. KETOROLAC [Concomitant]
     Active Substance: KETOROLAC\KETOROLAC TROMETHAMINE
     Indication: SICKLE CELL ANAEMIA WITH CRISIS
     Dosage: 15 MG, SINGLE
     Route: 042
     Dates: start: 20150320, end: 20150320
  9. FOLIC ACID. [Concomitant]
     Active Substance: FOLIC ACID
     Dosage: 1 MG, DAILY
     Route: 048
  10. HYDROXYUREA MEDAC [Concomitant]
     Dosage: 1000 MG, DAILY
     Route: 048
  11. BTDS PATCH [Suspect]
     Active Substance: BUPRENORPHINE
     Indication: BACK PAIN
     Dosage: 2.5 MCG/HR, WEEKLY
     Route: 062
     Dates: start: 20150316, end: 20150320
  12. MIRALAX [Concomitant]
     Active Substance: POLYETHYLENE GLYCOL 3350
     Dosage: 8.5 G, DAILY
     Route: 048
  13. MORPHINE [Concomitant]
     Active Substance: MORPHINE
     Indication: SICKLE CELL ANAEMIA WITH CRISIS
     Dosage: PCA
     Route: 042
     Dates: start: 20150321, end: 20150323
  14. MORPHINE [Concomitant]
     Active Substance: MORPHINE
     Dosage: 2 MG, THRICE
     Route: 042
     Dates: start: 20150320
  15. HYDROXYZINE [Concomitant]
     Active Substance: HYDROXYZINE\HYDROXYZINE HYDROCHLORIDE
     Dosage: 25 MG, QID PRN

REACTIONS (1)
  - Sickle cell anaemia with crisis [Recovered/Resolved]

NARRATIVE: CASE EVENT DATE: 20150320
